FAERS Safety Report 21728535 (Version 15)
Quarter: 2025Q4

REPORT INFORMATION
  Report Type: Report from Study
  Country: YE (occurrence: YE)
  Receive Date: 20221214
  Receipt Date: 20251029
  Transmission Date: 20260117
  Serious: Yes (Other)
  Sender: PFIZER
  Company Number: YE-PFIZER INC-202201339115

PATIENT
  Age: 37 Year
  Sex: Female
  Weight: 88 kg

DRUGS (5)
  1. LORLATINIB [Suspect]
     Active Substance: LORLATINIB
     Indication: Non-small cell lung cancer metastatic
     Dosage: 100 MG, 1X/DAY
     Route: 048
     Dates: start: 20220710, end: 20220717
  2. LORLATINIB [Suspect]
     Active Substance: LORLATINIB
     Dosage: 75 MG, 1X/DAY
     Route: 048
     Dates: start: 20220803
  3. LORLATINIB [Suspect]
     Active Substance: LORLATINIB
     Dosage: 25 MG, 3X/DAY
     Route: 048
     Dates: start: 20221007
  4. LORLATINIB [Suspect]
     Active Substance: LORLATINIB
     Dosage: 75 MG, 1X/DAY
     Route: 048
     Dates: start: 20230913
  5. BISOPROLOL FUMARATE [Concomitant]
     Active Substance: BISOPROLOL FUMARATE
     Indication: Hypertension
     Dosage: 2.5 MG, ONCE
     Route: 048
     Dates: start: 202207

REACTIONS (15)
  - Hypertension [Recovered/Resolved]
  - Diabetes mellitus [Recovered/Resolved]
  - Disturbance in attention [Recovering/Resolving]
  - Headache [Recovered/Resolved]
  - Menstrual disorder [Not Recovered/Not Resolved]
  - Oedema peripheral [Recovering/Resolving]
  - Weight increased [Not Recovered/Not Resolved]
  - Haemoglobin decreased [Recovered/Resolved]
  - Tinnitus [Recovered/Resolved]
  - Dizziness [Recovered/Resolved]
  - Myalgia [Not Recovered/Not Resolved]
  - Bone pain [Not Recovered/Not Resolved]
  - Blood cholesterol increased [Recovering/Resolving]
  - Urinary tract infection [Recovered/Resolved]
  - Expired product administered [Unknown]

NARRATIVE: CASE EVENT DATE: 20220710
